FAERS Safety Report 6851904-1 (Version None)
Quarter: 2010Q3

REPORT INFORMATION
  Report Type: 
  Country: None (occurrence: None)
  Receive Date: 20100717
  Receipt Date: 20081118
  Transmission Date: 20110219
  Serious: No
  Sender: FDA-Public Use
  Company Number: US-PFIZER INC-2008008043

PATIENT
  Sex: Female
  Weight: 95.71 kg

DRUGS (10)
  1. CHANTIX [Suspect]
     Indication: SMOKING CESSATION THERAPY
     Dates: start: 20080601, end: 20080601
  2. DEPAKOTE [Concomitant]
  3. KLONOPIN [Concomitant]
  4. LUVOX [Concomitant]
  5. FLUVOXAMINE MALEATE [Concomitant]
  6. ZYPREXA [Concomitant]
  7. SEROQUEL [Concomitant]
  8. NEURONTIN [Concomitant]
  9. SYNTHROID [Concomitant]
  10. SPIRIVA [Concomitant]

REACTIONS (2)
  - INSOMNIA [None]
  - NIGHTMARE [None]
